FAERS Safety Report 13258107 (Version 3)
Quarter: 2017Q2

REPORT INFORMATION
  Report Type: Spontaneous
  Country: US (occurrence: US)
  Receive Date: 20170221
  Receipt Date: 20170606
  Transmission Date: 20170830
  Serious: No
  Sender: FDA-Public Use
  Company Number: US-LUNDBECK-DKLU2025848

PATIENT
  Age: 72 Year
  Sex: Male

DRUGS (6)
  1. NORTHERA [Suspect]
     Active Substance: DROXIDOPA
     Indication: PRODUCT USED FOR UNKNOWN INDICATION
     Dosage: TITRATION SCHEDULE B (COMPLETE)
     Route: 065
     Dates: start: 20170128
  2. NORTHERA [Suspect]
     Active Substance: DROXIDOPA
     Dosage: TITRATION COMPLETE
     Route: 065
     Dates: start: 20170126
  3. NORTHERA [Suspect]
     Active Substance: DROXIDOPA
     Dosage: TITRATION COMPLETE
     Route: 065
     Dates: start: 20170128
  4. NORTHERA [Suspect]
     Active Substance: DROXIDOPA
     Dosage: TITRATION COMPLETE
     Route: 065
     Dates: start: 20170126
  5. NORTHERA [Suspect]
     Active Substance: DROXIDOPA
     Route: 065
     Dates: start: 2017
  6. NORTHERA [Suspect]
     Active Substance: DROXIDOPA
     Dosage: TITRATION COMPLETE
     Route: 065
     Dates: start: 20170128

REACTIONS (2)
  - Supine hypertension [Unknown]
  - Fatigue [Unknown]

NARRATIVE: CASE EVENT DATE: 20170128
